APPROVED DRUG PRODUCT: RAMELTEON
Active Ingredient: RAMELTEON
Strength: 8MG
Dosage Form/Route: TABLET;ORAL
Application: A215435 | Product #001 | TE Code: AB
Applicant: ANDAS 5 HOLDING LLC
Approved: Aug 24, 2022 | RLD: No | RS: No | Type: RX